FAERS Safety Report 6317094-9 (Version None)
Quarter: 2009Q3

REPORT INFORMATION
  Report Type: 
  Country: None (occurrence: None)
  Receive Date: 20090820
  Receipt Date: 20090812
  Transmission Date: 20100115
  Serious: Yes (Hospitalization, Other)
  Sender: FDA-Public Use
  Company Number: BR-ABBOTT-09P-020-0590089-00

PATIENT
  Sex: Female
  Weight: 56 kg

DRUGS (9)
  1. HUMIRA [Suspect]
     Indication: DRUG USE FOR UNKNOWN INDICATION
     Route: 058
     Dates: start: 20070601
  2. MELOXICAM/CYCLOBENZAPRINE/PARACETAMOL (MAGISTRAL FORMULA) [Concomitant]
     Indication: RHEUMATOID ARTHRITIS
     Dosage: FORM: 7.5/5/300 MILLIGRAMS
     Route: 047
     Dates: start: 20090801
  3. NORIPURUM [Concomitant]
     Indication: ANAEMIA
     Route: 048
     Dates: start: 20070101
  4. ERITROPOETIN [Concomitant]
     Indication: ANAEMIA
     Dosage: 6 APPLICATIONS
     Dates: start: 20090501
  5. NORIPURUM [Concomitant]
     Dosage: 6 APPLICATIONS
     Dates: start: 20090501
  6. FOLIC ACID [Concomitant]
     Indication: ANAEMIA
     Route: 048
     Dates: start: 20090807
  7. ASCORBIC ACID [Concomitant]
     Indication: IMMUNE SYSTEM DISORDER
     Route: 048
  8. SIMVASTATIN [Concomitant]
     Indication: BLOOD CHOLESTEROL ABNORMAL
     Route: 048
     Dates: start: 20090701
  9. PANTOPRAZOLE SODIUM [Concomitant]
     Indication: GASTRIC DISORDER
     Route: 048
     Dates: start: 20070101

REACTIONS (7)
  - ABNORMAL FAECES [None]
  - ARTHRALGIA [None]
  - BONE DENSITY DECREASED [None]
  - DEPRESSION [None]
  - GASTROINTESTINAL DISORDER [None]
  - PAIN [None]
  - UTERINE POLYP [None]
